FAERS Safety Report 10049802 (Version 2)
Quarter: 2014Q2

REPORT INFORMATION
  Report Type: Report from Study
  Country: DE (occurrence: DE)
  Receive Date: 20140401
  Receipt Date: 20140512
  Transmission Date: 20141212
  Serious: Yes (Other)
  Sender: FDA-Public Use
  Company Number: DE-BEH-2014041459

PATIENT
  Age: 36 Year
  Sex: Female
  Weight: 78 kg

DRUGS (5)
  1. PRIVIGEN [Suspect]
     Indication: IMMUNODEFICIENCY
     Dosage: INFUSION RATE MIN. 30 ML/MIN, MAX. 50 ML/MIN
     Route: 042
     Dates: start: 20091002, end: 20091002
  2. PRIVIGEN [Suspect]
     Dosage: INFUSION RATE MIN. 30 ML/MIN, MAX. 50 ML/MIN
     Route: 042
     Dates: start: 20091002, end: 20091002
  3. CLEXANE [Concomitant]
  4. METFORMIN [Concomitant]
  5. RAMIPRIL [Concomitant]

REACTIONS (3)
  - Habitual abortion [Unknown]
  - Exposure during pregnancy [Unknown]
  - Coagulopathy [Unknown]
